FAERS Safety Report 5171128-6 (Version None)
Quarter: 2006Q4

REPORT INFORMATION
  Report Type: 
  Country: None (occurrence: None)
  Receive Date: 20061206
  Receipt Date: 20061206
  Transmission Date: 20070319
  Serious: No
  Sender: FDA-Public Use
  Company Number: None

PATIENT
  Age: 9 Year
  Sex: Female

DRUGS (2)
  1. ABELCET [Suspect]
     Dosage: INJECTABLE, LIPID COMPLEX
  2. AMPHOTERICIN B FOR INJECTION [Suspect]
     Dosage: INJECTABLE

REACTIONS (7)
  - DIARRHOEA [None]
  - DRUG DISPENSING ERROR [None]
  - GENERAL PHYSICAL HEALTH DETERIORATION [None]
  - MEDICATION ERROR [None]
  - RENAL FAILURE [None]
  - VOMITING [None]
  - WRONG DRUG ADMINISTERED [None]
